FAERS Safety Report 7376843-1 (Version None)
Quarter: 2011Q1

REPORT INFORMATION
  Report Type: 
  Country: None (occurrence: None)
  Receive Date: 20110325
  Receipt Date: 20110317
  Transmission Date: 20110831
  Serious: Yes (Hospitalization)
  Sender: FDA-Public Use
  Company Number: US-AMGEN-USASP2011009628

PATIENT
  Age: 56 Year
  Sex: Male

DRUGS (1)
  1. ENBREL [Suspect]
     Indication: PSORIASIS
     Dosage: 50 MG, 2 TIMES/WK
     Route: 058
     Dates: start: 20101027, end: 20110205

REACTIONS (8)
  - ABSCESS [None]
  - STAPHYLOCOCCAL INFECTION [None]
  - JOINT SWELLING [None]
  - MUSCULAR WEAKNESS [None]
  - PULMONARY FIBROSIS [None]
  - LYMPHADENOPATHY [None]
  - INFECTION [None]
  - IMMUNOSUPPRESSION [None]
